FAERS Safety Report 5982222-1 (Version None)
Quarter: 2008Q4

REPORT INFORMATION
  Report Type: 
  Country: None (occurrence: None)
  Receive Date: 20081208
  Receipt Date: 20081126
  Transmission Date: 20090506
  Serious: Yes (Death, Hospitalization, Other)
  Sender: FDA-Public Use
  Company Number: JP-JNJFOC-20080906133

PATIENT
  Sex: Male
  Weight: 73 kg

DRUGS (16)
  1. REMICADE [Suspect]
     Route: 042
  2. REMICADE [Suspect]
     Route: 042
  3. REMICADE [Suspect]
     Indication: RHEUMATOID ARTHRITIS
     Dosage: 2 INFUSIONS ON  UNSPECIFIED DATES
     Route: 042
  4. RHEUMATREX [Suspect]
     Route: 048
  5. RHEUMATREX [Suspect]
     Route: 048
  6. RHEUMATREX [Suspect]
     Route: 048
  7. RHEUMATREX [Suspect]
     Indication: RHEUMATOID ARTHRITIS
     Route: 048
  8. PREDNISOLONE [Suspect]
     Route: 048
  9. PREDNISOLONE [Suspect]
     Indication: INTERSTITIAL LUNG DISEASE
     Route: 048
  10. PREDNISOLONE [Suspect]
     Indication: RHEUMATOID ARTHRITIS
     Route: 048
  11. LOXONIN [Concomitant]
     Indication: RHEUMATOID ARTHRITIS
     Dosage: 2 TAB AND 1 TAB
     Route: 048
  12. AMARYL [Concomitant]
     Indication: DIABETES MELLITUS
     Route: 048
  13. VOGLIBOSE [Concomitant]
     Dosage: 2.7MG, 0.9MG
     Route: 048
  14. VOGLIBOSE [Concomitant]
     Indication: DIABETES MELLITUS
     Dosage: 1.8MG AND 0.6MG
     Route: 048
  15. AMLODIPINE [Concomitant]
     Indication: HYPERTENSION
     Route: 048
  16. MELBIN [Concomitant]
     Indication: DIABETES MELLITUS
     Dosage: 1 GRAM AND 0.5 GRAMS
     Route: 048

REACTIONS (2)
  - MULTI-ORGAN DISORDER [None]
  - PNEUMONIA [None]
